FAERS Safety Report 24082571 (Version 1)
Quarter: 2024Q3

REPORT INFORMATION
  Report Type: Spontaneous
  Country: CA (occurrence: CA)
  Receive Date: 20240712
  Receipt Date: 20240712
  Transmission Date: 20241017
  Serious: Yes (Death, Life-Threatening, Hospitalization, Disabling, Other)
  Sender: RANBAXY
  Company Number: CA-SUN PHARMACEUTICAL INDUSTRIES LTD-2024R1-455590

PATIENT
  Age: 44 Year
  Sex: Female

DRUGS (160)
  1. ACETAMINOPHEN [Suspect]
     Active Substance: ACETAMINOPHEN
     Indication: Product used for unknown indication
     Dosage: UNK
     Route: 065
  2. ALENDRONIC ACID [Suspect]
     Active Substance: ALENDRONIC ACID
     Indication: Rheumatoid arthritis
     Dosage: UNK
     Route: 048
  3. ALENDRONIC ACID [Suspect]
     Active Substance: ALENDRONIC ACID
     Dosage: 1 MILLIGRAM
     Route: 048
  4. CELECOXIB [Suspect]
     Active Substance: CELECOXIB
     Indication: Product used for unknown indication
     Dosage: UNK
     Route: 065
  5. CETIRIZINE [Suspect]
     Active Substance: CETIRIZINE HYDROCHLORIDE
     Indication: Rheumatoid arthritis
     Dosage: 10 MILLIGRAM, DAILY
     Route: 048
  6. CETIRIZINE [Suspect]
     Active Substance: CETIRIZINE HYDROCHLORIDE
     Dosage: 25 MILLIGRAM
     Route: 048
  7. CETIRIZINE [Suspect]
     Active Substance: CETIRIZINE HYDROCHLORIDE
     Dosage: 10 MILLIGRAM
     Route: 048
  8. DOXYCYCLINE [Suspect]
     Active Substance: DOXYCYCLINE\DOXYCYCLINE HYCLATE
     Indication: Product used for unknown indication
     Dosage: 40 MILLIGRAM
     Route: 065
  9. DICLOFENAC POTASSIUM [Suspect]
     Active Substance: DICLOFENAC POTASSIUM
     Indication: Product used for unknown indication
     Dosage: UNK
     Route: 048
  10. DICLOFENAC POTASSIUM [Suspect]
     Active Substance: DICLOFENAC POTASSIUM
     Indication: Product used for unknown indication
     Dosage: 50 MILLIGRAM
     Route: 065
  11. DICLOFENAC POTASSIUM [Suspect]
     Active Substance: DICLOFENAC POTASSIUM
     Dosage: UNK
     Route: 058
  12. DICLOFENAC POTASSIUM [Suspect]
     Active Substance: DICLOFENAC POTASSIUM
     Dosage: UNK
     Route: 048
  13. DICLOFENAC POTASSIUM [Suspect]
     Active Substance: DICLOFENAC POTASSIUM
     Dosage: UNK
     Route: 065
  14. SULFAMETHOXAZOLE\TRIMETHOPRIM [Suspect]
     Active Substance: SULFAMETHOXAZOLE\TRIMETHOPRIM
     Indication: Product used for unknown indication
     Dosage: UNK
     Route: 065
  15. FOLIC ACID [Suspect]
     Active Substance: FOLIC ACID
     Indication: Rheumatoid arthritis
     Dosage: 500.0 MILLIGRAM
     Route: 065
  16. FOLIC ACID [Suspect]
     Active Substance: FOLIC ACID
     Dosage: 500.0 MILLIGRAM
     Route: 048
  17. FOLIC ACID [Suspect]
     Active Substance: FOLIC ACID
     Dosage: 0.5 MILLIGRAM
     Route: 065
  18. FOLIC ACID [Suspect]
     Active Substance: FOLIC ACID
     Dosage: 15 MILLIGRAM
     Route: 048
  19. FOLIC ACID [Suspect]
     Active Substance: FOLIC ACID
     Dosage: 3 MILLIGRAM
     Route: 065
  20. FOLIC ACID [Suspect]
     Active Substance: FOLIC ACID
     Dosage: 3 MILLIGRAM
     Route: 065
  21. FOLIC ACID [Suspect]
     Active Substance: FOLIC ACID
     Indication: Rheumatoid arthritis
     Dosage: 1 MILLIGRAM
     Route: 058
  22. HYDROXYCHLOROQUINE [Suspect]
     Active Substance: HYDROXYCHLOROQUINE
     Indication: Rheumatoid arthritis
     Dosage: 400.0 MILLIGRAM
     Route: 048
  23. HYDROXYCHLOROQUINE [Suspect]
     Active Substance: HYDROXYCHLOROQUINE
     Dosage: 400.0 MILLIGRAM
     Route: 048
  24. HYDROXYCHLOROQUINE [Suspect]
     Active Substance: HYDROXYCHLOROQUINE
     Dosage: 400.0 MILLIGRAM
     Route: 065
  25. MYCOPHENOLATE MOFETIL [Suspect]
     Active Substance: MYCOPHENOLATE MOFETIL
     Indication: Product used for unknown indication
     Dosage: UNK
     Route: 065
  26. NAPROXEN [Suspect]
     Active Substance: NAPROXEN
     Dosage: 500.0 MILLIGRAM
     Route: 065
  27. NAPROXEN [Suspect]
     Active Substance: NAPROXEN
     Indication: Rheumatoid arthritis
  28. NAPROXEN [Suspect]
     Active Substance: NAPROXEN
  29. OXYCODONE [Suspect]
     Active Substance: OXYCODONE
     Indication: Product used for unknown indication
     Dosage: UNK
     Route: 065
  30. PREDNISONE [Suspect]
     Active Substance: PREDNISONE
     Indication: Rheumatoid arthritis
     Dosage: 10.0 MILLIGRAM
     Route: 048
  31. PREDNISONE [Suspect]
     Active Substance: PREDNISONE
     Indication: Psoriatic arthropathy
     Dosage: 40 MILLIGRAM
     Route: 048
  32. PREDNISONE [Suspect]
     Active Substance: PREDNISONE
     Indication: Condition aggravated
     Dosage: 7.5 MILLIGRAM
     Route: 065
  33. PREDNISONE [Suspect]
     Active Substance: PREDNISONE
     Dosage: 5.0 MILLIGRAM
     Route: 048
  34. PREGABALIN [Suspect]
     Active Substance: PREGABALIN
     Dosage: UNK
     Route: 065
  35. PREGABALIN [Suspect]
     Active Substance: PREGABALIN
     Indication: Product used for unknown indication
  36. PREGABALIN [Suspect]
     Active Substance: PREGABALIN
  37. PSEUDOEPHEDRINE [Suspect]
     Active Substance: PSEUDOEPHEDRINE
     Indication: Rheumatoid arthritis
     Dosage: 25.0 MILLIGRAM
     Route: 065
  38. PSEUDOEPHEDRINE [Suspect]
     Active Substance: PSEUDOEPHEDRINE
     Dosage: 10 MILLIGRAM
     Route: 065
  39. SULFASALAZINE [Suspect]
     Active Substance: SULFASALAZINE
     Dosage: 1000.0 MILLIGRAM, DAILY
     Route: 048
  40. SULFASALAZINE [Suspect]
     Active Substance: SULFASALAZINE
     Indication: Rheumatoid arthritis
  41. SULFASALAZINE [Suspect]
     Active Substance: SULFASALAZINE
  42. SULFASALAZINE [Suspect]
     Active Substance: SULFASALAZINE
     Indication: Rheumatoid arthritis
     Dosage: 1000.0 MILLIGRAM
     Route: 048
  43. SULFASALAZINE [Suspect]
     Active Substance: SULFASALAZINE
     Dosage: 1000.0 MILLIGRAM
     Route: 048
  44. SULFASALAZINE [Suspect]
     Active Substance: SULFASALAZINE
     Dosage: 1000.0 MILLIGRAM
     Route: 048
  45. SULFASALAZINE [Suspect]
     Active Substance: SULFASALAZINE
     Dosage: 1000.0 MILLIGRAM
     Route: 048
  46. SULFASALAZINE [Suspect]
     Active Substance: SULFASALAZINE
     Dosage: 1000.0 MILLIGRAM
     Route: 048
  47. SULFASALAZINE [Suspect]
     Active Substance: SULFASALAZINE
     Dosage: 1000.0 MILLIGRAM
     Route: 048
  48. TRAMADOL [Suspect]
     Active Substance: TRAMADOL\TRAMADOL HYDROCHLORIDE
     Indication: Product used for unknown indication
     Dosage: UNK
     Route: 065
  49. ACTEMRA [Suspect]
     Active Substance: TOCILIZUMAB
     Indication: Rheumatoid arthritis
     Dosage: 3011.2 MILLIGRAM
     Route: 042
  50. ACTEMRA [Suspect]
     Active Substance: TOCILIZUMAB
     Dosage: 752.0 MILLIGRAM
     Route: 042
     Dates: start: 20240705
  51. ACTEMRA [Suspect]
     Active Substance: TOCILIZUMAB
     Dosage: UNK
     Route: 042
  52. ACTEMRA [Suspect]
     Active Substance: TOCILIZUMAB
     Dosage: 752.0 MILLIGRAM
     Route: 042
  53. ACTEMRA [Suspect]
     Active Substance: TOCILIZUMAB
     Dosage: 752.0 MILLIGRAM
     Route: 042
  54. ACTEMRA [Suspect]
     Active Substance: TOCILIZUMAB
     Dosage: 2912.0 MILLIGRAM
     Route: 042
  55. ACTEMRA [Suspect]
     Active Substance: TOCILIZUMAB
     Dosage: UNK
     Route: 058
  56. ACTEMRA [Suspect]
     Active Substance: TOCILIZUMAB
     Indication: Rheumatoid arthritis
     Dosage: 752.8 MILLIGRAM
     Route: 042
  57. ADALIMUMAB [Suspect]
     Active Substance: ADALIMUMAB\ISOPROPYL ALCOHOL
     Indication: Psoriatic arthropathy
     Dosage: 40.0 MILLIGRAM
     Route: 058
  58. ADALIMUMAB [Suspect]
     Active Substance: ADALIMUMAB\ISOPROPYL ALCOHOL
     Dosage: 40.0 MILLIGRAM
     Route: 048
  59. PREDNISONE [Suspect]
     Active Substance: PREDNISONE
     Indication: Rheumatoid arthritis
     Dosage: 1 MILLIGRAM
     Route: 065
  60. PREDNISONE [Suspect]
     Active Substance: PREDNISONE
     Indication: Psoriatic arthropathy
     Dosage: UNK
     Route: 042
  61. PREDNISONE [Suspect]
     Active Substance: PREDNISONE
     Indication: Psoriatic arthropathy
  62. PREDNISONE [Suspect]
     Active Substance: PREDNISONE
     Indication: Rheumatoid arthritis
  63. PREDNISONE [Suspect]
     Active Substance: PREDNISONE
     Indication: Condition aggravated
  64. ARAVA [Suspect]
     Active Substance: LEFLUNOMIDE
     Indication: Rheumatoid arthritis
  65. ARAVA [Suspect]
     Active Substance: LEFLUNOMIDE
     Dosage: 20 MILLIGRAM, DAILY
     Route: 048
  66. ARAVA [Suspect]
     Active Substance: LEFLUNOMIDE
     Dosage: 20 MILLIGRAM
     Route: 065
  67. CALCIUM CARBONATE [Suspect]
     Active Substance: CALCIUM CARBONATE
     Indication: Product used for unknown indication
  68. CALCIUM CARBONATE [Suspect]
     Active Substance: CALCIUM CARBONATE
     Dosage: UNK
     Route: 065
  69. CELEBREX [Suspect]
     Active Substance: CELECOXIB
     Indication: Product used for unknown indication
     Dosage: UNK, DAILY
     Route: 048
  70. CHLORHEXIDINE [Suspect]
     Active Substance: CHLORHEXIDINE
     Indication: Product used for unknown indication
     Dosage: UNK
     Route: 065
  71. CHLORHEXIDINE [Suspect]
     Active Substance: CHLORHEXIDINE
     Dosage: UNK
     Route: 002
  72. CHLORHEXIDINE GLUCONATE\ISOPROPYL ALCOHOL [Suspect]
     Active Substance: CHLORHEXIDINE GLUCONATE\ISOPROPYL ALCOHOL
     Indication: Product used for unknown indication
     Dosage: UNK
     Route: 061
  73. CHLORHEXIDINE GLUCONATE\ISOPROPYL ALCOHOL [Suspect]
     Active Substance: CHLORHEXIDINE GLUCONATE\ISOPROPYL ALCOHOL
     Indication: Product used for unknown indication
     Dosage: UNK
     Route: 048
  74. CHLORHEXIDINE GLUCONATE\ISOPROPYL ALCOHOL [Suspect]
     Active Substance: CHLORHEXIDINE GLUCONATE\ISOPROPYL ALCOHOL
     Dosage: UNK
     Route: 002
  75. METHOTREXATE [Suspect]
     Active Substance: METHOTREXATE
     Indication: Rheumatoid arthritis
     Dosage: 225.0 MILLIGRAM
     Route: 048
  76. METHOTREXATE [Suspect]
     Active Substance: METHOTREXATE
     Dosage: UNK
     Route: 048
  77. METHOTREXATE [Suspect]
     Active Substance: METHOTREXATE
     Dosage: 25.0 MILLIGRAM, DAILY
     Route: 048
  78. METHOTREXATE [Suspect]
     Active Substance: METHOTREXATE
     Dosage: UNK UNK, DAILY
     Route: 048
  79. METHOTREXATE [Suspect]
     Active Substance: METHOTREXATE
     Dosage: 500.0 MILLIGRAM, DAILY
     Route: 048
  80. METHOTREXATE [Suspect]
     Active Substance: METHOTREXATE
     Dosage: 15.0 MILLIGRAM
     Route: 048
  81. METHOTREXATE [Suspect]
     Active Substance: METHOTREXATE
     Dosage: 20 MILLIGRAM, DAILY
     Route: 048
  82. METHOTREXATE [Suspect]
     Active Substance: METHOTREXATE
     Dosage: 20 MILLIGRAM, DAILY
     Route: 013
  83. METHOTREXATE [Suspect]
     Active Substance: METHOTREXATE
     Dosage: 25 MILLIGRAM
     Route: 013
  84. METHOTREXATE [Suspect]
     Active Substance: METHOTREXATE
     Dosage: 20 MILLIGRAM, DAILY
     Route: 058
  85. METHOTREXATE [Suspect]
     Active Substance: METHOTREXATE
     Dosage: 250.0 MILLIGRAM, DAILY
     Route: 058
  86. METHOTREXATE [Suspect]
     Active Substance: METHOTREXATE
     Dosage: 25 MILLIGRAM, DAILY
     Route: 058
  87. METHOTREXATE [Suspect]
     Active Substance: METHOTREXATE
     Dosage: 25 MILLIGRAM, DAILY
     Route: 065
  88. CHLORAPREP [Suspect]
     Active Substance: CHLORHEXIDINE GLUCONATE\ISOPROPYL ALCOHOL
     Dosage: UNK
     Route: 061
  89. CHLORAPREP [Suspect]
     Active Substance: CHLORHEXIDINE GLUCONATE\ISOPROPYL ALCOHOL
     Indication: Rheumatoid arthritis
  90. CHLORAPREP [Suspect]
     Active Substance: CHLORHEXIDINE GLUCONATE\ISOPROPYL ALCOHOL
  91. CHOLECALCIFEROL [Suspect]
     Active Substance: CHOLECALCIFEROL
     Indication: Product used for unknown indication
     Dosage: UNK
     Route: 065
  92. CIMZIA [Suspect]
     Active Substance: CERTOLIZUMAB PEGOL
     Indication: Rheumatoid arthritis
     Dosage: 400.0 MILLIGRAM
     Route: 058
  93. CIMZIA [Suspect]
     Active Substance: CERTOLIZUMAB PEGOL
     Dosage: 400.0 MILLIGRAM
     Route: 058
  94. CIMZIA [Suspect]
     Active Substance: CERTOLIZUMAB PEGOL
     Dosage: 400.0 MILLIGRAM
     Route: 058
  95. CIMZIA [Suspect]
     Active Substance: CERTOLIZUMAB PEGOL
     Dosage: UNK UNK, QD
     Route: 058
  96. CORTISONE ACETATE [Suspect]
     Active Substance: CORTISONE ACETATE
     Indication: Rheumatoid arthritis
     Dosage: 25.0 UNK
     Route: 061
  97. CORTISONE ACETATE [Suspect]
     Active Substance: CORTISONE ACETATE
     Indication: Rheumatoid arthritis
     Dosage: UNK
     Route: 048
  98. COSENTYX [Suspect]
     Active Substance: SECUKINUMAB
     Indication: Rheumatoid arthritis
  99. COSENTYX [Suspect]
     Active Substance: SECUKINUMAB
     Indication: Psoriatic arthropathy
     Dosage: UNK
     Route: 005
  100. COSENTYX [Suspect]
     Active Substance: SECUKINUMAB
     Dosage: UNK
     Route: 065
  101. DESOXIMETASONE [Suspect]
     Active Substance: DESOXIMETASONE
     Indication: Rheumatoid arthritis
     Dosage: UNK
     Route: 003
  102. DESOXIMETASONE [Suspect]
     Active Substance: DESOXIMETASONE
     Dosage: UNK
     Route: 058
  103. DESOXIMETASONE [Suspect]
     Active Substance: DESOXIMETASONE
     Dosage: UNK
     Route: 061
  104. DESOXIMETASONE [Suspect]
     Active Substance: DESOXIMETASONE
     Dosage: 25 MILLIGRAM
     Route: 061
  105. DESOXIMETASONE [Suspect]
     Active Substance: DESOXIMETASONE
     Dosage: UNK MILLIGRAM
     Route: 058
  106. DESOXIMETASONE [Suspect]
     Active Substance: DESOXIMETASONE
     Dosage: UNK MILLIGRAM
     Route: 003
  107. DESOXIMETASONE [Suspect]
     Active Substance: DESOXIMETASONE
     Indication: Rheumatoid arthritis
     Dosage: UNK
     Route: 048
  108. DESOXIMETASONE [Suspect]
     Active Substance: DESOXIMETASONE
     Dosage: 25 MILLIGRAM, DAILY
     Route: 048
  109. DESOXIMETASONE [Suspect]
     Active Substance: DESOXIMETASONE
     Dosage: 250 MILLIGRAM
     Route: 048
  110. DESOXIMETASONE [Suspect]
     Active Substance: DESOXIMETASONE
     Dosage: UNK
     Route: 048
  111. ENBREL [Suspect]
     Active Substance: BENZYL ALCOHOL\ETANERCEPT
     Indication: Rheumatoid arthritis
     Dosage: 50 MILLIGRAM, WEEKLY
     Route: 058
  112. ENBREL [Suspect]
     Active Substance: BENZYL ALCOHOL\ETANERCEPT
     Indication: Psoriatic arthropathy
     Dosage: 20 MILLIGRAM, WEEKLY
     Route: 058
  113. ENBREL [Suspect]
     Active Substance: BENZYL ALCOHOL\ETANERCEPT
     Dosage: 50 MILLIGRAM
     Route: 058
  114. ERELZI [Suspect]
     Active Substance: ETANERCEPT-SZZS
     Indication: Rheumatoid arthritis
     Dosage: 50 MILLIGRAM, WEEKLY
     Route: 058
  115. FLUMETHASONE PIVALATE [Suspect]
     Active Substance: FLUMETHASONE PIVALATE
     Indication: Rheumatoid arthritis
     Dosage: UNK
     Route: 058
  116. FOSAMAX [Suspect]
     Active Substance: ALENDRONATE SODIUM
     Indication: Product used for unknown indication
     Dosage: UNK
     Route: 048
  117. HUMIRA [Suspect]
     Active Substance: ADALIMUMAB
     Indication: Rheumatoid arthritis
     Dosage: 400.0 MILLIGRAM
     Route: 058
  118. HUMIRA [Suspect]
     Active Substance: ADALIMUMAB
     Indication: Psoriatic arthropathy
  119. HUMIRA [Suspect]
     Active Substance: ADALIMUMAB
     Indication: Rheumatoid arthritis
     Dosage: 40 MILLIGRAM
     Route: 058
  120. HUMIRA [Suspect]
     Active Substance: ADALIMUMAB
     Indication: Psoriatic arthropathy
  121. LEFLUNOMIDE [Suspect]
     Active Substance: LEFLUNOMIDE
     Indication: Rheumatoid arthritis
     Dosage: 20 MILLIGRAM
     Route: 048
  122. LYRICA [Suspect]
     Active Substance: PREGABALIN
     Indication: Product used for unknown indication
     Dosage: UNK
     Route: 065
  123. NEOMYCIN [Suspect]
     Active Substance: NEOMYCIN
     Indication: Product used for unknown indication
     Dosage: UNK
     Route: 065
  124. ORENCIA [Suspect]
     Active Substance: ABATACEPT
     Indication: Rheumatoid arthritis
     Dosage: UNK
     Route: 042
  125. ORENCIA [Suspect]
     Active Substance: ABATACEPT
     Dosage: 5 MILLIGRAM
     Route: 042
  126. ORENCIA [Suspect]
     Active Substance: ABATACEPT
     Dosage: 125.0 MILLIGRAM
     Route: 042
  127. OTEZLA [Suspect]
     Active Substance: APREMILAST
     Indication: Rheumatoid arthritis
     Dosage: UNK
     Route: 042
  128. OTEZLA [Suspect]
     Active Substance: APREMILAST
     Indication: Rheumatoid arthritis
     Dosage: 3 MILLIGRAM
     Route: 048
  129. OTEZLA [Suspect]
     Active Substance: APREMILAST
     Dosage: 3 MILLIGRAM
     Route: 065
  130. OXYCODONE TEREPHTHALATE [Suspect]
     Active Substance: OXYCODONE TEREPHTHALATE
     Indication: Product used for unknown indication
     Dosage: UNK
     Route: 016
  131. PERIOGARD [Suspect]
     Active Substance: CHLORHEXIDINE GLUCONATE
     Indication: Product used for unknown indication
     Dosage: UNK
     Route: 016
  132. PHTHALYLSULFATHIAZOLE [Suspect]
     Active Substance: PHTHALYLSULFATHIAZOLE
     Indication: Rheumatoid arthritis
     Dosage: UNK
     Route: 042
  133. PHTHALYLSULFATHIAZOLE [Suspect]
     Active Substance: PHTHALYLSULFATHIAZOLE
     Dosage: UNK
     Route: 016
  134. PHTHALYLSULFATHIAZOLE [Suspect]
     Active Substance: PHTHALYLSULFATHIAZOLE
     Indication: Rheumatoid arthritis
     Dosage: 1000.0 MILLIGRAM
     Route: 048
  135. PHTHALYLSULFATHIAZOLE [Suspect]
     Active Substance: PHTHALYLSULFATHIAZOLE
     Dosage: 2000.0 MILLIGRAM
     Route: 048
  136. PHTHALYLSULFATHIAZOLE [Suspect]
     Active Substance: PHTHALYLSULFATHIAZOLE
     Dosage: 500.0 MILLIGRAM
     Route: 048
  137. PHTHALYLSULFATHIAZOLE [Suspect]
     Active Substance: PHTHALYLSULFATHIAZOLE
     Dosage: 400.0 MILLIGRAM
     Route: 065
  138. REMICADE [Suspect]
     Active Substance: INFLIXIMAB
     Indication: Rheumatoid arthritis
     Dosage: 500.0 MILLIGRAM
     Route: 042
  139. REMICADE [Suspect]
     Active Substance: INFLIXIMAB
     Indication: Rheumatoid arthritis
     Dosage: 400.0 MILLIGRAM
     Route: 065
  140. RITUXIMAB [Suspect]
     Active Substance: RITUXIMAB
     Indication: Rheumatoid arthritis
     Route: 058
  141. RITUXIMAB [Suspect]
     Active Substance: RITUXIMAB
     Route: 042
  142. SULFASALAZINE [Suspect]
     Active Substance: SULFASALAZINE
     Indication: Rheumatoid arthritis
     Dosage: 1000.0 MILLIGRAM
     Route: 048
  143. SULFASALAZINE [Suspect]
     Active Substance: SULFASALAZINE
     Dosage: 1000.0 MILLIGRAM
     Route: 048
  144. SULFASALAZINE [Suspect]
     Active Substance: SULFASALAZINE
     Dosage: 550 MILLIGRAM, DAILY
     Route: 048
  145. SIMPONI [Suspect]
     Active Substance: GOLIMUMAB
     Indication: Rheumatoid arthritis
     Dosage: UNK
     Route: 042
  146. SIMPONI [Suspect]
     Active Substance: GOLIMUMAB
     Indication: Psoriatic arthropathy
     Dosage: 50.0 MILLIGRAM
     Route: 058
  147. SIMPONI [Suspect]
     Active Substance: GOLIMUMAB
     Dosage: UNK
     Route: 052
  148. STELARA [Suspect]
     Active Substance: USTEKINUMAB
     Indication: Psoriatic arthropathy
     Dosage: 45.0 MILLIGRAM
     Route: 058
  149. STELARA [Suspect]
     Active Substance: USTEKINUMAB
     Dosage: 45.0 MILLIGRAM
     Route: 042
  150. SULFAMETHOXAZOLE [Suspect]
     Active Substance: SULFAMETHOXAZOLE
     Indication: Product used for unknown indication
     Dosage: UNK
     Route: 065
  151. TRIAMCINOLONE [Suspect]
     Active Substance: TRIAMCINOLONE
     Dosage: UNK
     Route: 013
  152. TRIAMCINOLONE [Suspect]
     Active Substance: TRIAMCINOLONE
     Indication: Rheumatoid arthritis
  153. TRIAMCINOLONE [Suspect]
     Active Substance: TRIAMCINOLONE
  154. PREDNISONE [Suspect]
     Active Substance: PREDNISONE
     Indication: Rheumatoid arthritis
     Dosage: UNK
     Route: 048
  155. PREDNISONE [Suspect]
     Active Substance: PREDNISONE
     Dosage: UNK
     Route: 065
  156. XELJANZ [Suspect]
     Active Substance: TOFACITINIB CITRATE
     Indication: Rheumatoid arthritis
     Dosage: UNK
     Route: 065
  157. XELJANZ [Suspect]
     Active Substance: TOFACITINIB CITRATE
     Indication: Psoriatic arthropathy
     Dosage: 10.0 MILLIGRAM, DAILY
     Route: 065
  158. XELJANZ [Suspect]
     Active Substance: TOFACITINIB CITRATE
     Dosage: 10.0 MILLIGRAM, DAILY
     Route: 048
  159. VITAMIN C [Suspect]
     Active Substance: ASCORBIC ACID
     Indication: Product used for unknown indication
     Dosage: UNK
     Route: 065
  160. VITAMIN C [Suspect]
     Active Substance: ASCORBIC ACID
     Dosage: 1000 MILLIGRAM
     Route: 016

REACTIONS (51)
  - Dry mouth [Fatal]
  - C-reactive protein abnormal [Fatal]
  - Facet joint syndrome [Fatal]
  - Duodenal ulcer perforation [Fatal]
  - Fatigue [Fatal]
  - Fibromyalgia [Fatal]
  - Folliculitis [Fatal]
  - General physical health deterioration [Fatal]
  - Glossodynia [Fatal]
  - Hand deformity [Fatal]
  - Helicobacter infection [Fatal]
  - Hepatic enzyme increased [Fatal]
  - Hypersensitivity [Fatal]
  - Hypertension [Fatal]
  - Hypoaesthesia [Fatal]
  - Ill-defined disorder [Fatal]
  - Impaired healing [Fatal]
  - Infection [Fatal]
  - Inflammation [Fatal]
  - Infusion related reaction [Fatal]
  - Injury [Fatal]
  - Insomnia [Fatal]
  - Irritable bowel syndrome [Fatal]
  - Joint swelling [Fatal]
  - Lip dry [Fatal]
  - Pruritus [Fatal]
  - Psoriatic arthropathy [Fatal]
  - Pyrexia [Fatal]
  - Rash [Fatal]
  - Rheumatic fever [Fatal]
  - Rheumatoid arthritis [Fatal]
  - Rheumatoid factor positive [Fatal]
  - Road traffic accident [Fatal]
  - Sciatica [Fatal]
  - Sinusitis [Fatal]
  - Sleep disorder [Fatal]
  - Sleep disorder due to general medical condition, insomnia type [Fatal]
  - Stomatitis [Fatal]
  - Swelling [Fatal]
  - Swollen joint count increased [Fatal]
  - Synovitis [Fatal]
  - Systemic lupus erythematosus [Fatal]
  - Type 2 diabetes mellitus [Fatal]
  - Urticaria [Fatal]
  - Vomiting [Fatal]
  - Weight increased [Fatal]
  - Wheezing [Fatal]
  - Wound [Fatal]
  - Mobility decreased [Fatal]
  - Malaise [Fatal]
  - Liver disorder [Fatal]
